FAERS Safety Report 8426298-0 (Version None)
Quarter: 2012Q2

REPORT INFORMATION
  Report Type: 
  Country: None (occurrence: None)
  Receive Date: 20120611
  Receipt Date: 20120530
  Transmission Date: 20120825
  Serious: Yes (Hospitalization)
  Sender: FDA-Public Use
  Company Number: US-SANOFI-AVENTIS-2012SA038659

PATIENT
  Age: 54 Year
  Sex: Male

DRUGS (4)
  1. SOLOSTAR [Suspect]
     Dates: start: 20070101
  2. HUMALOG [Suspect]
  3. LANTUS [Suspect]
     Dosage: DOSE:58 UNIT(S)
     Route: 058
     Dates: start: 20100101
  4. LANTUS [Suspect]
     Dosage: DOSE:32 UNIT(S)
     Route: 058
     Dates: start: 20070101, end: 20100101

REACTIONS (1)
  - LIVER TRANSPLANT [None]
